FAERS Safety Report 8435440-7 (Version None)
Quarter: 2012Q2

REPORT INFORMATION
  Report Type: 
  Country: None (occurrence: None)
  Receive Date: 20120614
  Receipt Date: 20120605
  Transmission Date: 20120825
  Serious: Yes (Other)
  Sender: FDA-Public Use
  Company Number: US-BAYER-2012-030793

PATIENT
  Age: 31 Year
  Sex: Female
  Weight: 130.61 kg

DRUGS (5)
  1. PHENAZOPYRIDINE HCL TAB [Concomitant]
     Dosage: 200 MG, UNK
     Dates: start: 20061208
  2. YASMIN [Suspect]
     Indication: MENSTRUAL CYCLE MANAGEMENT
     Dosage: UNK
     Dates: start: 20060901, end: 20070301
  3. METFORMIN HCL [Concomitant]
     Indication: DIABETES MELLITUS
     Dosage: 1000 MG, UNK
     Route: 048
     Dates: start: 20051012, end: 20100508
  4. GLUCOPHAGE [Concomitant]
  5. YAZ [Suspect]
     Indication: MENSTRUAL CYCLE MANAGEMENT
     Dosage: UNK
     Dates: start: 20060901, end: 20070301

REACTIONS (10)
  - DEEP VEIN THROMBOSIS [None]
  - DEPRESSION [None]
  - VENOUS INSUFFICIENCY [None]
  - NERVOUSNESS [None]
  - EMOTIONAL DISTRESS [None]
  - VEIN DISORDER [None]
  - PAIN IN EXTREMITY [None]
  - FEAR OF DEATH [None]
  - OEDEMA PERIPHERAL [None]
  - INJURY [None]
